FAERS Safety Report 21463176 (Version 1)
Quarter: 2022Q4

REPORT INFORMATION
  Report Type: Spontaneous
  Country: BG (occurrence: None)
  Receive Date: 20221017
  Receipt Date: 20221017
  Transmission Date: 20230113
  Serious: Yes (Death)
  Sender: FDA-Public Use
  Company Number: BG-ROCHE-3200304

PATIENT
  Age: 57 Year
  Sex: Female

DRUGS (3)
  1. ALECTINIB [Suspect]
     Active Substance: ALECTINIB
     Indication: Lung adenocarcinoma
     Route: 048
     Dates: start: 202112, end: 202210
  2. XGEVA [Concomitant]
     Active Substance: DENOSUMAB
     Indication: Lung adenocarcinoma
     Route: 058
     Dates: start: 202112, end: 202210
  3. ZOLEDRONIC [Concomitant]
     Active Substance: ZOLEDRONIC ACID
     Indication: Lung adenocarcinoma
     Route: 042
     Dates: start: 202112, end: 202210

REACTIONS (2)
  - Disease progression [Fatal]
  - Tumour lysis syndrome [Fatal]

NARRATIVE: CASE EVENT DATE: 20220901
